FAERS Safety Report 6370762-5 (Version None)
Quarter: 2009Q3

REPORT INFORMATION
  Report Type: 
  Country: None (occurrence: None)
  Receive Date: 20090923
  Receipt Date: 20070419
  Transmission Date: 20100115
  Serious: No
  Sender: FDA-Public Use
  Company Number: US-ASTRAZENECA-2006UW25320

PATIENT
  Age: 15421 Day
  Sex: Female
  Weight: 89.8 kg

DRUGS (28)
  1. SEROQUEL [Suspect]
     Indication: BIPOLAR DISORDER
     Route: 048
     Dates: start: 20040729
  2. SEROQUEL [Suspect]
     Indication: DEPRESSION
     Route: 048
     Dates: start: 20040729
  3. SEROQUEL [Suspect]
     Indication: SLEEP DISORDER
     Route: 048
     Dates: start: 20040729
  4. SEROQUEL [Suspect]
     Dosage: 25MG - 900MG
     Route: 048
     Dates: start: 20040729
  5. SEROQUEL [Suspect]
     Dosage: 25MG - 900MG
     Route: 048
     Dates: start: 20040729
  6. SEROQUEL [Suspect]
     Dosage: 25MG - 900MG
     Route: 048
     Dates: start: 20040729
  7. ABILIFY [Concomitant]
     Route: 065
  8. GEODON [Concomitant]
     Route: 065
  9. RISPERDAL [Concomitant]
     Route: 065
  10. LITHOBID [Concomitant]
     Route: 065
  11. CARBATROL [Concomitant]
     Route: 065
  12. LAMICTAL [Concomitant]
     Route: 065
  13. TOPAMAX [Concomitant]
     Route: 065
  14. KLONOPIN [Concomitant]
     Route: 065
  15. SYNTHROID [Concomitant]
     Route: 048
  16. PREMARIN [Concomitant]
     Dosage: 0.3 MG - 1.25 MG
     Route: 048
  17. DOXYCYCLINE [Concomitant]
     Route: 048
  18. LISINOPRIL [Concomitant]
     Route: 065
  19. ATENOLOL [Concomitant]
     Route: 065
  20. CELEBREX [Concomitant]
     Indication: ARTHRITIS
     Dosage: 200 MG - 800 MG
     Route: 048
  21. SKELAXIN [Concomitant]
     Route: 048
  22. METFORMIN HYDROCHLORIDE [Concomitant]
     Route: 048
  23. DIAZEPAM [Concomitant]
     Dosage: 5 MG - 10 MG
     Route: 048
  24. SANCTURA [Concomitant]
     Dosage: 20 MG - 80 MG
     Route: 048
  25. NEXIUM [Concomitant]
     Route: 065
  26. ZOLOFT [Concomitant]
     Dosage: 50 MG - 200 MG
     Route: 065
  27. NASONEX [Concomitant]
     Route: 065
  28. DITROPAN [Concomitant]
     Route: 048

REACTIONS (12)
  - ARTHRALGIA [None]
  - ATAXIA [None]
  - BENIGN COLONIC NEOPLASM [None]
  - DIABETES MELLITUS [None]
  - DIAPHRAGMATIC HERNIA [None]
  - EUSTACHIAN TUBE DYSFUNCTION [None]
  - FATIGUE [None]
  - GASTRITIS [None]
  - MIGRAINE [None]
  - MUSCLE STRAIN [None]
  - PAIN IN EXTREMITY [None]
  - TRAUMATIC BRAIN INJURY [None]
